FAERS Safety Report 18801299 (Version 10)
Quarter: 2022Q4

REPORT INFORMATION
  Report Type: Spontaneous
  Country: US (occurrence: US)
  Receive Date: 20210128
  Receipt Date: 20221021
  Transmission Date: 20230113
  Serious: Yes (Disabling)
  Sender: FDA-Public Use
  Company Number: US-BIOMARINAP-US-2021-134423

PATIENT

DRUGS (5)
  1. LARONIDASE [Suspect]
     Active Substance: LARONIDASE
     Indication: Mucopolysaccharidosis I
     Dosage: 40.60 MG, QW
     Route: 041
     Dates: start: 20040824
  2. LARONIDASE [Suspect]
     Active Substance: LARONIDASE
     Dosage: 40.6 MG, QW
     Route: 041
  3. LARONIDASE [Suspect]
     Active Substance: LARONIDASE
     Dosage: 0.58 MG/KG (46 MG; 20ML/HR X15 MIN, INCREASE TO 40CC/HRX15 MIN, THEN INCREASE TO 80CC/HR), QW
     Route: 041
     Dates: start: 202105
  4. LARONIDASE [Suspect]
     Active Substance: LARONIDASE
     Dosage: 40.6 MG, QW
     Route: 041
     Dates: end: 20220128
  5. LARONIDASE [Suspect]
     Active Substance: LARONIDASE
     Dosage: 46.4 UNK, QW
     Route: 042
     Dates: start: 20220208

REACTIONS (11)
  - Mobility decreased [Not Recovered/Not Resolved]
  - Weight increased [Recovered/Resolved]
  - Migraine [Recovered/Resolved]
  - Malaise [Recovering/Resolving]
  - Headache [Recovered/Resolved]
  - Gastric disorder [Recovering/Resolving]
  - Productive cough [Not Recovered/Not Resolved]
  - Retching [Not Recovered/Not Resolved]
  - Asthenia [Not Recovered/Not Resolved]
  - Vomiting [Not Recovered/Not Resolved]
  - Arthralgia [Not Recovered/Not Resolved]
